FAERS Safety Report 18744541 (Version 1)
Quarter: 2021Q1

REPORT INFORMATION
  Report Type: Report from Study
  Country: None (occurrence: CA)
  Receive Date: 20210115
  Receipt Date: 20210115
  Transmission Date: 20210419
  Serious: Yes (Other)
  Sender: FDA-Public Use
  Company Number: CA-ABBVIE-21K-028-3730859-00

PATIENT
  Sex: Female

DRUGS (1)
  1. HUMIRA [Suspect]
     Active Substance: ADALIMUMAB
     Indication: CROHN^S DISEASE
     Route: 058
     Dates: start: 20180417

REACTIONS (3)
  - Uterine haemorrhage [Recovering/Resolving]
  - Crohn^s disease [Unknown]
  - Injection site reaction [Unknown]

NARRATIVE: CASE EVENT DATE: 2020
